FAERS Safety Report 9166810 (Version 1)
Quarter: 2012Q4

REPORT INFORMATION
  Report Type: 
  Country: US (occurrence: US)
  Receive Date: 20121107
  Receipt Date: 20121107
  Transmission Date: 20130627
  Serious: Yes (Other)
  Sender: FDA-Public Use
  Company Number: US-RB-046382-12

PATIENT
  Age: 24 Year
  Sex: Female

DRUGS (2)
  1. SUBOXONE FILM [Suspect]
     Indication: PRODUCT USED FOR UNKNOWN INDICATION
     Dosage: Suboxone film; dosing details unknown
     Route: 065
  2. SUBUTEX [Suspect]
     Indication: PRODUCT USED FOR UNKNOWN INDICATION
     Dosage: Dosing details unknown
     Route: 065

REACTIONS (14)
  - Drug withdrawal syndrome [Recovered/Resolved]
  - Feeling of body temperature change [Recovered/Resolved]
  - Lacrimation increased [Recovered/Resolved]
  - Cold sweat [Recovered/Resolved]
  - Irritability [Recovered/Resolved]
  - Suicidal ideation [Recovered/Resolved]
  - Hypersensitivity [Recovered/Resolved]
  - Urticaria [Recovered/Resolved]
  - Ear discomfort [Recovered/Resolved]
  - Insomnia [Recovered/Resolved]
  - Abdominal pain upper [Recovered/Resolved]
  - Swelling [Recovered/Resolved]
  - Decreased appetite [Recovered/Resolved]
  - Pain [Recovered/Resolved]
